FAERS Safety Report 9302128 (Version 1)
Quarter: 2013Q2

REPORT INFORMATION
  Report Type: Spontaneous
  Country: BR (occurrence: BR)
  Receive Date: 20130522
  Receipt Date: 20130522
  Transmission Date: 20140414
  Serious: Yes (Other)
  Sender: FDA-Public Use
  Company Number: PHHY2013BR049156

PATIENT
  Sex: Male
  Weight: 85 kg

DRUGS (2)
  1. TEGRETOL CR [Suspect]
     Indication: PAIN
     Dosage: 2 DF, DAILY
     Route: 048
  2. ALPRAZOLAM [Concomitant]
     Indication: DEPRESSION
     Dosage: 1 DF, DAILY
     Route: 048

REACTIONS (7)
  - Nervous system disorder [Recovered/Resolved]
  - Tooth loss [Recovered/Resolved]
  - Self injurious behaviour [Recovered/Resolved]
  - Syncope [Recovered/Resolved]
  - Depression [Recovering/Resolving]
  - Facial pain [Not Recovered/Not Resolved]
  - Insomnia [Unknown]
